FAERS Safety Report 4695995-5 (Version None)
Quarter: 2005Q2

REPORT INFORMATION
  Report Type: 
  Country: None (occurrence: None)
  Receive Date: 20050621
  Receipt Date: 20050613
  Transmission Date: 20051028
  Serious: Yes (Death, Hospitalization)
  Sender: FDA-Public Use
  Company Number: 2005-01-1690

PATIENT
  Age: 55 Year
  Sex: Male
  Weight: 84.1 kg

DRUGS (12)
  1. WELLBUTRIN [Suspect]
     Indication: DEPRESSION
     Dosage: 100MG THREE TIMES PER DAY
     Route: 048
     Dates: start: 20031201, end: 20050116
  2. PEGYLATED INTERFERON ALPHA 2A [Suspect]
     Indication: HEPATITIS C
     Dosage: 180MCG WEEKLY
     Route: 058
     Dates: start: 20031201, end: 20041230
  3. COPEGUS [Suspect]
     Indication: HEPATITIS C
     Dosage: 1200MG PER DAY
     Route: 048
     Dates: start: 20031201, end: 20050116
  4. PEGYLATED INTERFERON ALPHA 2B [Suspect]
     Indication: HEPATITIS C
     Dosage: 150MCG WEEKLY
     Route: 058
     Dates: start: 20041230, end: 20050101
  5. PERCOCET [Concomitant]
     Indication: PAIN
  6. BENZODIAZEPINE [Concomitant]
  7. LEVOXYL [Concomitant]
     Indication: HYPOTHYROIDISM
     Dosage: .175MG PER DAY
     Route: 048
     Dates: end: 20050116
  8. LORAZEPAM [Concomitant]
     Indication: ANXIETY
     Dosage: 1MG THREE TIMES PER DAY
     Route: 048
     Dates: end: 20050116
  9. PROTONIX [Concomitant]
     Dosage: 40MG PER DAY
     Route: 048
     Dates: start: 20000801, end: 20050116
  10. PERCODAN [Concomitant]
     Indication: PAIN
     Dosage: 325MG TWICE PER DAY
     Route: 048
     Dates: start: 20041008, end: 20050116
  11. PROCRIT [Concomitant]
     Dosage: 40000U WEEKLY
     Route: 058
     Dates: start: 20040415, end: 20050116
  12. DIAZEPAM [Concomitant]
     Indication: ANXIETY
     Dosage: 5MG TWICE PER DAY
     Route: 048
     Dates: start: 20031201, end: 20050116

REACTIONS (1)
  - HAEMORRHAGIC STROKE [None]
